FAERS Safety Report 7557061-0 (Version None)
Quarter: 2011Q2

REPORT INFORMATION
  Report Type: 
  Country: None (occurrence: None)
  Receive Date: 20110620
  Receipt Date: 20110607
  Transmission Date: 20111010
  Serious: Yes (Hospitalization, Other)
  Sender: FDA-Public Use
  Company Number: US-ROCHE-727162

PATIENT
  Sex: Male
  Weight: 56.7 kg

DRUGS (2)
  1. ACCUTANE [Suspect]
     Route: 065
     Dates: start: 20081204, end: 20090612
  2. ACCUTANE [Suspect]
     Indication: ACNE
     Route: 065
     Dates: start: 20040415, end: 20040515

REACTIONS (8)
  - HEADACHE [None]
  - GASTROINTESTINAL HAEMORRHAGE [None]
  - GASTROINTESTINAL INJURY [None]
  - INTERVERTEBRAL DISC DEGENERATION [None]
  - MUSCULOSKELETAL PAIN [None]
  - ANKYLOSING SPONDYLITIS [None]
  - ARTHRITIS [None]
  - COLITIS ULCERATIVE [None]
